FAERS Safety Report 25832271 (Version 3)
Quarter: 2025Q4

REPORT INFORMATION
  Report Type: Report from Study
  Country: US (occurrence: US)
  Receive Date: 20250922
  Receipt Date: 20251124
  Transmission Date: 20260117
  Serious: No
  Sender: TRAVERE THERAPEUTICS
  Company Number: US-TRAVERE-2025TVT01413

PATIENT
  Age: 66 Year
  Sex: Male

DRUGS (5)
  1. FILSPARI [Suspect]
     Active Substance: SPARSENTAN
     Indication: IgA nephropathy
     Route: 048
     Dates: start: 20250118
  2. IMDUR [Concomitant]
     Active Substance: ISOSORBIDE MONONITRATE
  3. NORVASC [Concomitant]
     Active Substance: AMLODIPINE BESYLATE
  4. ALLOPURINOL [Concomitant]
     Active Substance: ALLOPURINOL
  5. HYDRALAZINE [Concomitant]
     Active Substance: HYDRALAZINE HYDROCHLORIDE

REACTIONS (5)
  - Blood phosphorus decreased [Recovered/Resolved]
  - Carbon dioxide decreased [Unknown]
  - Urine abnormality [Unknown]
  - Liver function test abnormal [Unknown]
  - Glomerular filtration rate decreased [Unknown]
